FAERS Safety Report 4940280-7 (Version None)
Quarter: 2006Q1

REPORT INFORMATION
  Report Type: 
  Country: None (occurrence: None)
  Receive Date: 20060310
  Receipt Date: 20050718
  Transmission Date: 20060701
  Serious: Yes (Hospitalization)
  Sender: FDA-Public Use
  Company Number: US-MERCK-0507USA02886

PATIENT
  Age: 49 Year
  Sex: Female
  Weight: 45 kg

DRUGS (9)
  1. VIOXX [Suspect]
     Indication: OSTEOARTHRITIS
     Route: 048
     Dates: start: 19990101, end: 20021001
  2. WELLBUTRIN [Concomitant]
     Route: 065
  3. ATROVENT [Concomitant]
     Route: 065
  4. PREMARIN [Concomitant]
     Route: 065
  5. [THERAPY UNSPECIFIED] [Concomitant]
     Route: 065
  6. CALCIUM (UNSPECIFIED) [Concomitant]
     Route: 065
  7. OXYBUTYNIN [Concomitant]
     Route: 065
  8. ACIPHEX [Concomitant]
     Route: 065
  9. ADVAIR DISKUS 100/50 [Concomitant]
     Route: 065

REACTIONS (11)
  - CARDIAC FAILURE CONGESTIVE [None]
  - CARDIAC VALVE DISEASE [None]
  - CAROTID ARTERY STENOSIS [None]
  - CEREBROVASCULAR ACCIDENT [None]
  - CHEST PAIN [None]
  - DIZZINESS [None]
  - DUODENITIS [None]
  - EXTRASYSTOLES [None]
  - OBESITY [None]
  - PALPITATIONS [None]
  - TRANSIENT ISCHAEMIC ATTACK [None]
